FAERS Safety Report 8837526 (Version 9)
Quarter: 2013Q3

REPORT INFORMATION
  Report Type: Spontaneous
  Country: US (occurrence: US)
  Receive Date: 20121012
  Receipt Date: 20130827
  Transmission Date: 20140515
  Serious: Yes (Other)
  Sender: FDA-Public Use
  Company Number: US-PFIZER INC-2012252043

PATIENT
  Sex: Male

DRUGS (6)
  1. PRISTIQ [Suspect]
     Dosage: UNK
  2. NEURONTIN [Suspect]
     Dosage: UNK
  3. GLUCOTROL XL [Suspect]
     Dosage: UNK
  4. XALATAN [Suspect]
     Dosage: UNK
  5. PROTONIX [Suspect]
     Dosage: UNK
  6. LYRICA [Suspect]
     Dosage: UNK

REACTIONS (5)
  - Blindness [Unknown]
  - Glaucoma [Unknown]
  - Diabetes mellitus [Unknown]
  - Diabetic neuropathy [Unknown]
  - Dysphonia [Unknown]
